FAERS Safety Report 7340407-6 (Version None)
Quarter: 2011Q1

REPORT INFORMATION
  Report Type: 
  Country: None (occurrence: None)
  Receive Date: 20110309
  Receipt Date: 20110215
  Transmission Date: 20110831
  Serious: Yes (Life-Threatening)
  Sender: FDA-Public Use
  Company Number: FR-PFIZER INC-FR-WYE-H12826110

PATIENT
  Sex: Female

DRUGS (14)
  1. INIPOMP [Suspect]
     Indication: PERFORATED ULCER
     Dosage: 40.0 MG, 1X/DAY
     Route: 042
     Dates: start: 20091209, end: 20091210
  2. TRIFLUCAN [Suspect]
     Indication: LEUKOCYTOSIS
  3. TIENAM [Suspect]
     Indication: LEUKOCYTOSIS
  4. PARACETAMOL [Suspect]
     Dosage: UNKNOWN
     Route: 042
     Dates: start: 20091110
  5. NORADRENALINE [Suspect]
     Dosage: UNKNOWN
     Route: 042
     Dates: end: 20091110
  6. CONTRAMAL [Suspect]
     Dosage: UNKNOWN
     Route: 042
     Dates: start: 20091204
  7. ALBUMIN HUMAN ^BERNA^ [Suspect]
     Dosage: UNKNOWN
     Route: 042
     Dates: end: 20091110
  8. MORPHINE [Suspect]
     Dosage: UNKNOWN
     Route: 042
     Dates: start: 20091110
  9. TRIFLUCAN [Suspect]
     Indication: ASCITES
     Dosage: 400.0 MG, 3X/DAY
     Route: 042
     Dates: start: 20091121, end: 20091205
  10. TIENAM [Suspect]
     Indication: ASCITES
     Dosage: 3.0 G, 1X/DAY
     Route: 042
     Dates: start: 20091124, end: 20091209
  11. TIENAM [Suspect]
     Indication: PNEUMOPERITONEUM
  12. INSULIN [Suspect]
     Dosage: UNKNOWN
     Route: 042
     Dates: end: 20091110
  13. NEXIUM [Suspect]
     Indication: PERFORATED ULCER
     Dosage: 40.0 MG, 1X/DAY
     Route: 065
     Dates: start: 20091125, end: 20091209
  14. TRIFLUCAN [Suspect]
     Indication: PNEUMOPERITONEUM

REACTIONS (7)
  - CONDITION AGGRAVATED [None]
  - HAEMORRHAGIC ASCITES [None]
  - HAEMATURIA [None]
  - THROMBOCYTOPENIA [None]
  - THROMBOCYTOPENIC PURPURA [None]
  - OROPHARYNGEAL BLISTERING [None]
  - MOUTH HAEMORRHAGE [None]
